FAERS Safety Report 9429253 (Version 1)
Quarter: 2013Q3

REPORT INFORMATION
  Report Type: Spontaneous
  Country: US (occurrence: US)
  Receive Date: 20130730
  Receipt Date: 20130730
  Transmission Date: 20140515
  Serious: Yes (Life-Threatening, Hospitalization)
  Sender: FDA-Public Use
  Company Number: US-SANOFI-AVENTIS-2013SA075518

PATIENT
  Age: 7 Month
  Sex: Male

DRUGS (2)
  1. ENOXAPARIN SODIUM [Suspect]
     Indication: ANTICOAGULANT THERAPY
     Route: 065
  2. UNFRACTIONATED HEPARIN [Concomitant]
     Route: 042

REACTIONS (7)
  - Cardiac valve replacement complication [Unknown]
  - Mitral valve stenosis [Recovered/Resolved]
  - Hypoxia [Unknown]
  - Pulmonary oedema [Unknown]
  - Pleural effusion [Unknown]
  - Hypotension [Unknown]
  - Poor peripheral circulation [Unknown]
